FAERS Safety Report 18282445 (Version 2)
Quarter: 2022Q1

REPORT INFORMATION
  Report Type: Spontaneous
  Country: US (occurrence: US)
  Receive Date: 20200918
  Receipt Date: 20220114
  Transmission Date: 20220423
  Serious: Yes (Death, Hospitalization, Other)
  Sender: FDA-Public Use
  Company Number: US-GLAXOSMITHKLINE-US2020GSK187465

PATIENT
  Sex: Male

DRUGS (2)
  1. ZANTAC [Suspect]
     Active Substance: RANITIDINE HYDROCHLORIDE
     Indication: Gastrooesophageal reflux disease
     Dosage: UNK UNK, QD
     Route: 048
     Dates: start: 1997, end: 201910
  2. ZANTAC [Suspect]
     Active Substance: RANITIDINE HYDROCHLORIDE
     Indication: Dyspepsia

REACTIONS (7)
  - Pancreatic carcinoma [Fatal]
  - Pancreatitis [Unknown]
  - Pancreatitis chronic [Unknown]
  - Adenocarcinoma pancreas [Unknown]
  - Pancreatic atrophy [Unknown]
  - Ductal adenocarcinoma of pancreas [Unknown]
  - Pancreatic mass [Unknown]
